FAERS Safety Report 7010966-1 (Version None)
Quarter: 2010Q3

REPORT INFORMATION
  Report Type: 
  Country: None (occurrence: None)
  Receive Date: 20100923
  Receipt Date: 20090608
  Transmission Date: 20110219
  Serious: No
  Sender: FDA-Public Use
  Company Number: HQWYE339215MAR06

PATIENT
  Sex: Male
  Weight: 90.8 kg

DRUGS (6)
  1. EFFEXOR XR [Suspect]
     Indication: DEPRESSION
     Route: 048
     Dates: start: 20040101
  2. EFFEXOR XR [Suspect]
     Route: 048
     Dates: end: 20060101
  3. EFFEXOR XR [Suspect]
     Route: 048
     Dates: start: 20060101, end: 20060101
  4. EFFEXOR XR [Suspect]
     Route: 048
     Dates: start: 20060101
  5. HYDROCHLOROTHIAZIDE [Concomitant]
  6. LOTREL [Concomitant]

REACTIONS (6)
  - ABNORMAL DREAMS [None]
  - AGGRESSION [None]
  - AGITATION [None]
  - DRUG WITHDRAWAL SYNDROME [None]
  - NIGHTMARE [None]
  - PARAESTHESIA [None]
